FAERS Safety Report 23594990 (Version 1)
Quarter: 2024Q1

REPORT INFORMATION
  Report Type: Spontaneous
  Country: US (occurrence: US)
  Receive Date: 20240305
  Receipt Date: 20240305
  Transmission Date: 20240410
  Serious: No
  Sender: FDA-Public Use
  Company Number: US-TEVA-VS-3137912

PATIENT
  Age: 63 Year
  Sex: Female

DRUGS (1)
  1. LIDOCAINE 5% [Suspect]
     Active Substance: LIDOCAINE
     Indication: Back pain
     Dosage: WEARS TWO PATCHES EVERY DAY.
     Route: 065

REACTIONS (2)
  - Product adhesion issue [Unknown]
  - Therapeutic product effect incomplete [Unknown]
